FAERS Safety Report 7320263-2 (Version None)
Quarter: 2011Q1

REPORT INFORMATION
  Report Type: 
  Country: None (occurrence: None)
  Receive Date: 20110228
  Receipt Date: 20110222
  Transmission Date: 20110831
  Serious: No
  Sender: FDA-Public Use
  Company Number: US-PFIZER INC-2011039086

PATIENT
  Sex: Male
  Weight: 77.098 kg

DRUGS (4)
  1. ADVIL LIQUI-GELS [Suspect]
     Indication: HEADACHE
     Dosage: UNK, DAILY
     Route: 048
     Dates: start: 20110219, end: 20110219
  2. CLARITIN [Concomitant]
     Indication: HYPERSENSITIVITY
     Dosage: UNK
  3. TYLENOL [Concomitant]
     Indication: HEADACHE
     Dosage: UNK
  4. TYLENOL [Concomitant]
     Indication: BACK PAIN

REACTIONS (2)
  - RASH [None]
  - PALPITATIONS [None]
